FAERS Safety Report 14986024 (Version 1)
Quarter: 2018Q2

REPORT INFORMATION
  Report Type: Report from Study
  Country: DE (occurrence: DE)
  Receive Date: 20180607
  Receipt Date: 20180607
  Transmission Date: 20180711
  Serious: Yes (Death)
  Sender: FDA-Public Use
  Company Number: DE-CELGENEUS-DEU-20180600688

PATIENT
  Age: 7 Decade
  Sex: Female

DRUGS (32)
  1. REVLIMID [Suspect]
     Active Substance: LENALIDOMIDE
     Indication: OFF LABEL USE
     Route: 048
     Dates: start: 201206
  2. REVLIMID [Suspect]
     Active Substance: LENALIDOMIDE
     Dosage: 5 MILLIGRAM
     Route: 048
     Dates: start: 2017
  3. PEMBROLIZUMAB. [Concomitant]
     Active Substance: PEMBROLIZUMAB
     Route: 065
  4. CARBOPLATIN/TAXOL [Concomitant]
     Indication: PRODUCT USED FOR UNKNOWN INDICATION
     Route: 065
     Dates: start: 20160901, end: 20160928
  5. PACLITAXEL. [Concomitant]
     Active Substance: PACLITAXEL
     Route: 065
     Dates: start: 2016
  6. ABRAXANE [Concomitant]
     Active Substance: PACLITAXEL
     Route: 065
     Dates: start: 201611, end: 201701
  7. NIVOLUMAB [Concomitant]
     Active Substance: NIVOLUMAB
     Route: 065
     Dates: start: 20171102
  8. LEVOFLOXACIN. [Concomitant]
     Active Substance: LEVOFLOXACIN
     Indication: ANTIBIOTIC THERAPY
     Route: 065
     Dates: start: 20171102
  9. PREDNISOLONE. [Concomitant]
     Active Substance: PREDNISOLONE
     Indication: BEHCET^S SYNDROME
     Route: 065
     Dates: start: 201206
  10. ABRAXANE [Concomitant]
     Active Substance: PACLITAXEL
     Indication: PRODUCT USED FOR UNKNOWN INDICATION
     Dosage: 100 MILLIGRAM
     Route: 065
     Dates: start: 20161023
  11. NIVOLUMAB [Concomitant]
     Active Substance: NIVOLUMAB
     Route: 065
     Dates: start: 20170329, end: 201707
  12. NIVOLUMAB [Concomitant]
     Active Substance: NIVOLUMAB
     Route: 065
     Dates: start: 20161116
  13. MEROPENEM. [Concomitant]
     Active Substance: MEROPENEM
     Indication: ANTIBIOTIC THERAPY
     Route: 041
     Dates: start: 201705
  14. LITALIR [Concomitant]
     Active Substance: HYDROXYUREA
     Indication: MYELOPROLIFERATIVE NEOPLASM
     Route: 065
     Dates: start: 201206
  15. PEMBROLIZUMAB. [Concomitant]
     Active Substance: PEMBROLIZUMAB
     Indication: ADENOCARCINOMA
     Route: 065
     Dates: start: 20151015
  16. HYDROCORTISONE. [Concomitant]
     Active Substance: HYDROCORTISONE
     Dosage: 150 MILLIGRAM
     Route: 065
     Dates: start: 2017
  17. PACLITAXEL. [Concomitant]
     Active Substance: PACLITAXEL
     Indication: PRODUCT USED FOR UNKNOWN INDICATION
     Route: 065
     Dates: start: 20160930
  18. PACLITAXEL. [Concomitant]
     Active Substance: PACLITAXEL
     Route: 065
     Dates: start: 201610
  19. NIVOLUMAB [Concomitant]
     Active Substance: NIVOLUMAB
     Route: 065
     Dates: start: 201710
  20. TRANEXAMIC ACID. [Concomitant]
     Active Substance: TRANEXAMIC ACID
     Indication: COAGULOPATHY
     Route: 065
     Dates: start: 20171116
  21. PEMBROLIZUMAB. [Concomitant]
     Active Substance: PEMBROLIZUMAB
     Route: 065
  22. PEMBROLIZUMAB. [Concomitant]
     Active Substance: PEMBROLIZUMAB
     Route: 065
  23. NIVOLUMAB [Concomitant]
     Active Substance: NIVOLUMAB
     Indication: PRODUCT USED FOR UNKNOWN INDICATION
     Route: 065
     Dates: start: 20170224
  24. NIVOLUMAB [Concomitant]
     Active Substance: NIVOLUMAB
     Route: 065
     Dates: start: 20170314
  25. ERTAPENEM. [Concomitant]
     Active Substance: ERTAPENEM SODIUM
     Indication: ANTIBIOTIC THERAPY
     Route: 065
     Dates: start: 20171102
  26. REVLIMID [Suspect]
     Active Substance: LENALIDOMIDE
     Indication: BEHCET^S SYNDROME
     Route: 048
     Dates: start: 200904
  27. PEMBROLIZUMAB. [Concomitant]
     Active Substance: PEMBROLIZUMAB
     Route: 065
     Dates: end: 201608
  28. HYDROCORTISONE. [Concomitant]
     Active Substance: HYDROCORTISONE
     Indication: PRODUCT USED FOR UNKNOWN INDICATION
     Dosage: 50 MILLIGRAM
     Route: 065
     Dates: start: 20160822
  29. PIPERACILLIN/TAZOBACTAM [Concomitant]
     Active Substance: PIPERACILLIN SODIUM\TAZOBACTAM SODIUM
     Indication: ANTIBIOTIC THERAPY
     Route: 041
     Dates: start: 20160919
  30. CAELYX [Concomitant]
     Active Substance: DOXORUBICIN HYDROCHLORIDE
     Indication: PRODUCT USED FOR UNKNOWN INDICATION
     Route: 065
     Dates: start: 20170131
  31. HAEMATE [Concomitant]
     Active Substance: ANTIHEMOPHILIC FACTOR HUMAN
     Indication: COAGULOPATHY
     Dosage: 1000 IU (INTERNATIONAL UNIT)
     Route: 065
     Dates: start: 20171116
  32. PANTOPRAZOLE [Concomitant]
     Active Substance: PANTOPRAZOLE
     Indication: PRODUCT USED FOR UNKNOWN INDICATION
     Dosage: 40 MILLIGRAM
     Route: 065

REACTIONS (1)
  - Death [Fatal]

NARRATIVE: CASE EVENT DATE: 20180110
